FAERS Safety Report 9741294 (Version 2)
Quarter: 2014Q2

REPORT INFORMATION
  Report Type: Spontaneous
  Country: GB (occurrence: GB)
  Receive Date: 20131209
  Receipt Date: 20140513
  Transmission Date: 20141212
  Serious: Yes (Other)
  Sender: FDA-Public Use
  Company Number: PHHY2013GB140761

PATIENT
  Age: 47 Year
  Sex: Female

DRUGS (7)
  1. CLARITHROMYCIN [Suspect]
     Indication: LOWER RESPIRATORY TRACT INFECTION
     Dosage: 500 MG, BID
     Route: 048
     Dates: start: 20131026, end: 20131028
  2. SEREVENT [Suspect]
     Indication: ASTHMA
     Route: 055
     Dates: start: 20131021, end: 20131028
  3. SALBUTAMOL [Concomitant]
     Indication: ASTHMA
     Route: 055
     Dates: start: 20131010
  4. PREDNISOLONE [Concomitant]
     Indication: ASTHMA
     Dosage: 40 MG, QD (SOME. WEANING DOWN.)
     Route: 048
  5. PREDNISOLONE [Concomitant]
     Dosage: 3 COURSES PRESCRIBED.
     Route: 048
     Dates: start: 20131010
  6. AMOXICILLIN [Concomitant]
     Indication: ASTHMA
     Dates: start: 20131010
  7. BECLOMETHASONE [Concomitant]
     Route: 055
     Dates: start: 20131010

REACTIONS (7)
  - Restlessness [Recovered/Resolved]
  - Hypertension [Recovered/Resolved]
  - Agitation [Recovered/Resolved]
  - Palpitations [Recovered/Resolved]
  - Insomnia [Recovered/Resolved]
  - Tremor [Recovered/Resolved]
  - Drug interaction [Unknown]
